FAERS Safety Report 20456829 (Version 1)
Quarter: 2022Q1

REPORT INFORMATION
  Report Type: Spontaneous
  Country: US (occurrence: US)
  Receive Date: 20220210
  Receipt Date: 20220210
  Transmission Date: 20220423
  Serious: No
  Sender: FDA-Public Use
  Company Number: US-PERRIGO-20US018674

PATIENT
  Age: 62 Year
  Sex: Female
  Weight: 77.098 kg

DRUGS (2)
  1. CETIRIZINE HYDROCHLORIDE [Suspect]
     Active Substance: CETIRIZINE HYDROCHLORIDE
     Indication: Periorbital swelling
     Dosage: 10 MG, SINGLE
     Route: 048
     Dates: start: 20201228, end: 20201228
  2. ACYCLOVIR                          /00587301/ [Concomitant]
     Indication: Herpes zoster
     Dosage: 800 MG, UNKNOWN
     Route: 065
     Dates: start: 20201226

REACTIONS (2)
  - Drug effective for unapproved indication [Unknown]
  - Expired product administered [Recovered/Resolved]

NARRATIVE: CASE EVENT DATE: 20201228
